FAERS Safety Report 4922554-9 (Version None)
Quarter: 2006Q1

REPORT INFORMATION
  Report Type: 
  Country: None (occurrence: None)
  Receive Date: 20060224
  Receipt Date: 20060220
  Transmission Date: 20060701
  Serious: Yes (Hospitalization, Other)
  Sender: FDA-Public Use
  Company Number: US-GLAXOSMITHKLINE-A0594386A

PATIENT
  Age: 45 Year
  Sex: Female

DRUGS (7)
  1. WELLBUTRIN XL [Suspect]
     Indication: SMOKING CESSATION THERAPY
     Dosage: 150MG TWICE PER DAY
     Route: 048
     Dates: end: 20060215
  2. WELLBUTRIN [Suspect]
     Indication: SMOKING CESSATION THERAPY
     Route: 065
  3. BUPROPION HCL [Suspect]
     Indication: SMOKING CESSATION THERAPY
     Route: 065
  4. PRINIVIL [Concomitant]
  5. TOPROL [Concomitant]
  6. HYDROCHLOROTHIAZIDE [Concomitant]
  7. CONTAC [Concomitant]

REACTIONS (11)
  - BLOOD PRESSURE INCREASED [None]
  - DEMENTIA [None]
  - DIZZINESS [None]
  - DRUG INEFFECTIVE [None]
  - FEELING JITTERY [None]
  - INSOMNIA [None]
  - NASOPHARYNGITIS [None]
  - PALPITATIONS [None]
  - SEXUAL DYSFUNCTION [None]
  - TACHYCARDIA [None]
  - WEIGHT DECREASED [None]
